FAERS Safety Report 11965994 (Version 1)
Quarter: 2016Q1

REPORT INFORMATION
  Report Type: Spontaneous
  Country: US (occurrence: US)
  Receive Date: 20160127
  Receipt Date: 20160127
  Transmission Date: 20160526
  Serious: No
  Sender: FDA-Public Use
  Company Number: US-009507513-1601USA007920

PATIENT
  Age: 72 Year
  Sex: Female

DRUGS (2)
  1. METOPROLOL. [Concomitant]
     Active Substance: METOPROLOL
  2. BELSOMRA [Suspect]
     Active Substance: SUVOREXANT
     Indication: INSOMNIA
     Dosage: 5 MG, ONCE PER NIGHT
     Route: 048
     Dates: start: 20160119, end: 20160119

REACTIONS (2)
  - Nightmare [Recovered/Resolved]
  - Abnormal dreams [Recovered/Resolved]

NARRATIVE: CASE EVENT DATE: 20160119
